FAERS Safety Report 5378561-8 (Version None)
Quarter: 2007Q3

REPORT INFORMATION
  Report Type: 
  Country: None (occurrence: None)
  Receive Date: 20070705
  Receipt Date: 20070626
  Transmission Date: 20080115
  Serious: Yes (Hospitalization)
  Sender: FDA-Public Use
  Company Number: AU-JNJFOC-20070605939

PATIENT
  Age: 85 Year
  Sex: Male

DRUGS (7)
  1. REMINYL [Suspect]
     Indication: DEMENTIA
     Dosage: INITIATED 2 YEARS AGO
  2. IRBESARTAN [Concomitant]
     Indication: HYPERTENSION
  3. CALTRATE [Concomitant]
  4. VITAMIN B [Concomitant]
  5. PARACETAMOL [Concomitant]
  6. CHOLESTEROL MEDICATION [Concomitant]
  7. PPI [Concomitant]

REACTIONS (10)
  - BRADYCARDIA [None]
  - CONFUSIONAL STATE [None]
  - DIARRHOEA [None]
  - DRUG DOSE OMISSION [None]
  - ELECTROCARDIOGRAM QT PROLONGED [None]
  - LOSS OF CONSCIOUSNESS [None]
  - SPINAL FRACTURE [None]
  - SYNCOPE [None]
  - TOOTH LOSS [None]
  - VOMITING [None]
